FAERS Safety Report 22654201 (Version 1)
Quarter: 2023Q2

REPORT INFORMATION
  Report Type: Spontaneous
  Country: US (occurrence: None)
  Receive Date: 20230628
  Receipt Date: 20230628
  Transmission Date: 20230722
  Serious: Yes (Hospitalization)
  Sender: FDA-Public Use
  Company Number: None

PATIENT
  Age: 62 Year
  Sex: Female
  Weight: 54.88 kg

DRUGS (1)
  1. EVENITY [Suspect]
     Active Substance: ROMOSOZUMAB-AQQG
     Indication: Osteoporosis
     Dosage: FREQUENCY : MONTHLY;?
     Route: 058
     Dates: start: 20230623, end: 20230623

REACTIONS (7)
  - Dizziness [None]
  - Loss of consciousness [None]
  - Pallor [None]
  - Hyperhidrosis [None]
  - Tremor [None]
  - Blood pressure decreased [None]
  - Consciousness fluctuating [None]

NARRATIVE: CASE EVENT DATE: 20230623
